FAERS Safety Report 11980298 (Version 2)
Quarter: 2016Q1

REPORT INFORMATION
  Report Type: Spontaneous
  Country: US (occurrence: US)
  Receive Date: 20160129
  Receipt Date: 20160317
  Transmission Date: 20160526
  Serious: No
  Sender: FDA-Public Use
  Company Number: US-PFIZER INC-2016006449

PATIENT
  Age: 61 Year
  Sex: Male
  Weight: 84 kg

DRUGS (1)
  1. DEPO-TESTOSTERONE [Suspect]
     Active Substance: TESTOSTERONE CYPIONATE
     Indication: BLOOD TESTOSTERONE DECREASED
     Dosage: 1 ML, EVERY 2 WEEKS
     Route: 030

REACTIONS (3)
  - Product quality issue [Unknown]
  - Poor quality drug administered [Unknown]
  - Peripheral swelling [Unknown]
